FAERS Safety Report 18275179 (Version 2)
Quarter: 2020Q4

REPORT INFORMATION
  Report Type: Spontaneous
  Country: JP (occurrence: JP)
  Receive Date: 20200916
  Receipt Date: 20201005
  Transmission Date: 20210113
  Serious: Yes (Death, Hospitalization)
  Sender: FDA-Public Use
  Company Number: JP-JNJFOC-A-CH2017-162784

PATIENT
  Age: 68 Year
  Sex: Female

DRUGS (29)
  1. EQUA [Concomitant]
     Active Substance: VILDAGLIPTIN
     Dates: start: 20170605, end: 20170902
  2. SPIRONOLACTONE. [Concomitant]
     Active Substance: SPIRONOLACTONE
     Route: 048
     Dates: start: 20190125
  3. PREDNISOLONE. [Suspect]
     Active Substance: PREDNISOLONE
     Dosage: 5 MG, BID
     Route: 048
     Dates: start: 20170714, end: 20170828
  4. PREDNISOLONE. [Suspect]
     Active Substance: PREDNISOLONE
     Dosage: 5 MG AM, 1.5 MG PM
     Route: 048
     Dates: start: 20180421, end: 20190221
  5. FOSAMAC [Concomitant]
     Active Substance: ALENDRONATE SODIUM
  6. OPSUMIT [Suspect]
     Active Substance: MACITENTAN
     Indication: PULMONARY ARTERIAL HYPERTENSION
     Dosage: 10 MG, QD
     Route: 048
     Dates: start: 20170424, end: 20190322
  7. PREDNISOLONE. [Suspect]
     Active Substance: PREDNISOLONE
     Dosage: 11 MG, QD
     Route: 048
     Dates: start: 20170529, end: 20170713
  8. PREDNISOLONE. [Suspect]
     Active Substance: PREDNISOLONE
     Dosage: 5 MG AM, 1 MG PM
     Route: 048
     Dates: start: 20190222, end: 20190322
  9. PROGRAF [Suspect]
     Active Substance: TACROLIMUS
     Indication: DERMATOMYOSITIS
     Dosage: 1.5 MG, QD
     Route: 048
     Dates: start: 20170424, end: 20190322
  10. PROGRAF [Suspect]
     Active Substance: TACROLIMUS
     Dosage: 2 MG, QD
     Route: 048
     Dates: start: 20170413, end: 20170423
  11. DIART [Concomitant]
     Active Substance: AZOSEMIDE
     Dates: start: 20170515, end: 20180419
  12. DAIPHEN [Concomitant]
     Active Substance: SULFAMETHOXAZOLE\TRIMETHOPRIM
     Dates: start: 20170413
  13. OXYGEN. [Concomitant]
     Active Substance: OXYGEN
     Route: 055
  14. PREDNISOLONE. [Suspect]
     Active Substance: PREDNISOLONE
     Dosage: 14 MG, QD
     Route: 048
     Dates: start: 20170515, end: 20170528
  15. SODIUM RABEPRAZOLE [Concomitant]
     Active Substance: RABEPRAZOLE SODIUM
     Indication: GASTRIC ULCER
     Dates: start: 20170413, end: 20190322
  16. EQUA [Concomitant]
     Active Substance: VILDAGLIPTIN
     Dates: start: 20170529, end: 20170604
  17. SPIRONOLACTONE. [Concomitant]
     Active Substance: SPIRONOLACTONE
     Indication: PULMONARY ARTERIAL HYPERTENSION
     Route: 048
     Dates: start: 20171120
  18. AMBROXOL HYDROCHLORIDE [Concomitant]
     Active Substance: AMBROXOL HYDROCHLORIDE
  19. TENELIGLIPTIN HYDROBROMIDE [Concomitant]
     Active Substance: TENELIGLIPTIN HYDROBROMIDE ANHYDROUS
     Indication: DIABETES MELLITUS
     Dates: start: 20170707, end: 20170828
  20. LUPRAC [Concomitant]
     Active Substance: TORSEMIDE
     Route: 048
     Dates: start: 20180420, end: 20190124
  21. ADCIRCA [Concomitant]
     Active Substance: TADALAFIL
     Route: 048
     Dates: start: 20170703, end: 20170713
  22. DIART [Concomitant]
     Active Substance: AZOSEMIDE
     Dates: start: 20170414, end: 20170514
  23. PREDNISOLONE. [Suspect]
     Active Substance: PREDNISOLONE
     Indication: DERMATOMYOSITIS
     Dosage: 8 MG, QD
     Route: 048
     Dates: start: 20170829, end: 20180112
  24. PREDNISOLONE. [Suspect]
     Active Substance: PREDNISOLONE
     Dosage: 5 MG, BID
     Route: 048
     Dates: start: 20170413, end: 20170514
  25. PREDNISOLONE. [Suspect]
     Active Substance: PREDNISOLONE
     Dosage: 7 MG, QD
     Route: 048
     Dates: start: 20180113, end: 20180420
  26. ADCIRCA [Concomitant]
     Active Substance: TADALAFIL
     Indication: PULMONARY ARTERIAL HYPERTENSION
     Dosage: 40 MG, QD
     Route: 048
     Dates: start: 20170714
  27. ADCIRCA [Concomitant]
     Active Substance: TADALAFIL
     Dates: end: 20190322
  28. EQUA [Concomitant]
     Active Substance: VILDAGLIPTIN
     Dates: start: 20170413, end: 20170528
  29. AZOSEMIDE [Concomitant]
     Active Substance: AZOSEMIDE
     Indication: PULMONARY ARTERIAL HYPERTENSION
     Route: 048
     Dates: start: 20190125

REACTIONS (4)
  - Cardiac failure acute [Fatal]
  - Bronchitis [Recovered/Resolved]
  - Epistaxis [Recovered/Resolved]
  - Pneumonia [Not Recovered/Not Resolved]

NARRATIVE: CASE EVENT DATE: 20171023
